FAERS Safety Report 8020447-4 (Version None)
Quarter: 2012Q1

REPORT INFORMATION
  Report Type: 
  Country: None (occurrence: None)
  Receive Date: 20120103
  Receipt Date: 20111219
  Transmission Date: 20120608
  Serious: Yes (Other)
  Sender: FDA-Public Use
  Company Number: US-JUTA GMBH-2011-22610

PATIENT
  Age: 49 Year
  Sex: Male

DRUGS (3)
  1. TRAMADOL HCL [Suspect]
     Indication: INTENTIONAL OVERDOSE
     Dosage: 500 MG SINGLE
  2. AMLODIPINE [Suspect]
     Indication: SUICIDE ATTEMPT
     Dosage: 600 MG SINGLE
  3. CLONAZEPAM [Suspect]
     Indication: SUICIDE ATTEMPT
     Dosage: 60 MG SINGLE

REACTIONS (9)
  - BRADYCARDIA [None]
  - RESPIRATORY FAILURE [None]
  - NODAL RHYTHM [None]
  - RENAL FAILURE ACUTE [None]
  - HYPOTENSION [None]
  - HYPOXIA [None]
  - PULMONARY OEDEMA [None]
  - OLIGURIA [None]
  - INTENTIONAL OVERDOSE [None]
